FAERS Safety Report 8975653 (Version 2)
Quarter: 2013Q1

REPORT INFORMATION
  Report Type: Spontaneous
  Country: JP (occurrence: JP)
  Receive Date: 20121219
  Receipt Date: 20130103
  Transmission Date: 20140127
  Serious: Yes (Life-Threatening, Other)
  Sender: FDA-Public Use
  Company Number: JP-ALLERGAN-1217485US

PATIENT
  Age: 45 Year
  Sex: Female

DRUGS (1)
  1. BOTOX [Suspect]
     Indication: FACIAL SPASM
     Dosage: 1.25 UNITS, SINGLE
     Route: 030
     Dates: start: 20121102, end: 20121102

REACTIONS (39)
  - Toxic skin eruption [Recovered/Resolved]
  - Rash generalised [Recovering/Resolving]
  - Decreased activity [Recovering/Resolving]
  - Proctalgia [Not Recovered/Not Resolved]
  - Thirst [Recovering/Resolving]
  - Nasal congestion [Not Recovered/Not Resolved]
  - Mood altered [Recovering/Resolving]
  - Akathisia [Recovering/Resolving]
  - Muscle spasms [Recovering/Resolving]
  - Lip dry [Recovering/Resolving]
  - Tongue injury [Recovering/Resolving]
  - Mouth injury [Recovering/Resolving]
  - Back pain [Recovering/Resolving]
  - Chapped lips [Recovering/Resolving]
  - Musculoskeletal pain [Recovering/Resolving]
  - Pain in extremity [Recovering/Resolving]
  - Nasal disorder [Recovering/Resolving]
  - Lymph node pain [Not Recovered/Not Resolved]
  - Axillary pain [Not Recovered/Not Resolved]
  - Eye pain [Recovering/Resolving]
  - Pain in extremity [Recovering/Resolving]
  - Lymphadenopathy [Not Recovered/Not Resolved]
  - Lymph node pain [Not Recovered/Not Resolved]
  - Feeling cold [Recovering/Resolving]
  - Glossodynia [Recovering/Resolving]
  - Stomatitis [Recovering/Resolving]
  - Glossitis [Recovering/Resolving]
  - Stomatitis [Recovering/Resolving]
  - Aphthous stomatitis [Recovering/Resolving]
  - Tongue disorder [Recovering/Resolving]
  - Tongue dry [Recovering/Resolving]
  - Tongue ulceration [Recovering/Resolving]
  - Aphthous stomatitis [Recovering/Resolving]
  - Pruritus [Recovering/Resolving]
  - Nausea [Recovering/Resolving]
  - Malaise [Recovering/Resolving]
  - Dyspnoea [Not Recovered/Not Resolved]
  - Pyrexia [Recovering/Resolving]
  - Vomiting [Recovering/Resolving]
